FAERS Safety Report 18348057 (Version 1)
Quarter: 2020Q4

REPORT INFORMATION
  Report Type: Spontaneous
  Country: US (occurrence: US)
  Receive Date: 20201005
  Receipt Date: 20201005
  Transmission Date: 20210114
  Serious: No
  Sender: FDA-Public Use
  Company Number: None

PATIENT
  Sex: Male

DRUGS (14)
  1. WARFARIN [Concomitant]
     Active Substance: WARFARIN
  2. PROMACTA [Suspect]
     Active Substance: ELTROMBOPAG OLAMINE
     Indication: IMMUNE THROMBOCYTOPENIA
     Dosage: 1 TAB (25MG) QD PO
     Route: 048
     Dates: start: 20140118
  3. CYCLOBENZAPR [Concomitant]
     Active Substance: CYCLOBENZAPRINE
  4. LOPERAMIDE [Concomitant]
     Active Substance: LOPERAMIDE
  5. CHLORHEX GLU [Concomitant]
  6. LOSARTAN POT [Concomitant]
     Active Substance: LOSARTAN POTASSIUM
  7. OMEPRAZOLE. [Concomitant]
     Active Substance: OMEPRAZOLE
  8. OXYCODONE [Concomitant]
     Active Substance: OXYCODONE
  9. TAMSULOSIN [Concomitant]
     Active Substance: TAMSULOSIN
  10. CLONAZEPAM. [Concomitant]
     Active Substance: CLONAZEPAM
  11. POT CHLORIDE ER [Concomitant]
  12. PREGABALIN. [Concomitant]
     Active Substance: PREGABALIN
  13. LIDOCAINE. [Concomitant]
     Active Substance: LIDOCAINE
  14. METOPROL TAR [Concomitant]

REACTIONS (1)
  - Spinal operation [None]
